FAERS Safety Report 21650006 (Version 2)
Quarter: 2023Q1

REPORT INFORMATION
  Report Type: Report from Study
  Country: US (occurrence: US)
  Receive Date: 20221128
  Receipt Date: 20230325
  Transmission Date: 20230418
  Serious: No
  Sender: FDA-Public Use
  Company Number: US-ABBVIE-22K-163-4505652-00

PATIENT
  Sex: Female

DRUGS (4)
  1. IMBRUVICA [Suspect]
     Active Substance: IBRUTINIB
     Indication: Chronic lymphocytic leukaemia
     Route: 048
     Dates: start: 202012, end: 202208
  2. ROSUVASTATIN [Concomitant]
     Active Substance: ROSUVASTATIN
     Indication: Product used for unknown indication
  3. PRAVASTATIN [Concomitant]
     Active Substance: PRAVASTATIN
     Indication: Product used for unknown indication
  4. ELIQUIS [Concomitant]
     Active Substance: APIXABAN
     Indication: Product used for unknown indication

REACTIONS (15)
  - Urinary tract infection [Unknown]
  - Nail disorder [Unknown]
  - Pain [Unknown]
  - Skin disorder [Unknown]
  - Blood cholesterol increased [Unknown]
  - Glomerular filtration rate decreased [Unknown]
  - White blood cell count decreased [Unknown]
  - Platelet count decreased [Unknown]
  - Lymphocyte count increased [Unknown]
  - Poor quality sleep [Unknown]
  - Malaise [Unknown]
  - Muscle spasms [Recovering/Resolving]
  - Sinus disorder [Unknown]
  - Atrial fibrillation [Unknown]
  - Unevaluable event [Unknown]
